FAERS Safety Report 8003709-6 (Version None)
Quarter: 2011Q4

REPORT INFORMATION
  Report Type: 
  Country: None (occurrence: None)
  Receive Date: 20111222
  Receipt Date: 20111219
  Transmission Date: 20120403
  Serious: Yes (Hospitalization)
  Sender: FDA-Public Use
  Company Number: JP-PFIZER INC-2011277605

PATIENT
  Age: 52 Year
  Sex: Male
  Weight: 81.1 kg

DRUGS (4)
  1. ZITHROMAX [Suspect]
     Indication: PYREXIA
     Dosage: 500 MG, 1X/DAY
     Route: 048
     Dates: start: 20111011, end: 20111013
  2. CEFACLOR [Suspect]
     Indication: PYREXIA
     Dosage: 250 MG, 3X/DAY
     Route: 048
     Dates: start: 20111004, end: 20111009
  3. FENAZOX [Suspect]
     Indication: PYREXIA
     Dosage: 50 MG, 3X/DAY
     Route: 048
     Dates: start: 20111004, end: 20111013
  4. FAMOTIDINE [Concomitant]
     Indication: GASTRITIS
     Dosage: 20 MG, 2X/DAY
     Route: 048
     Dates: start: 20110725

REACTIONS (1)
  - HEPATITIS FULMINANT [None]
